FAERS Safety Report 8070640-X (Version None)
Quarter: 2012Q1

REPORT INFORMATION
  Report Type: 
  Country: None (occurrence: None)
  Receive Date: 20120125
  Receipt Date: 20120116
  Transmission Date: 20120608
  Serious: Yes (Other)
  Sender: FDA-Public Use
  Company Number: PHHY2008CA01221

PATIENT
  Sex: Male

DRUGS (4)
  1. SANDOSTATIN LAR [Suspect]
     Dosage: 20 MG EVERY 4 WEEKS
  2. SANDOSTATIN LAR [Suspect]
     Indication: CARCINOID TUMOUR
     Dosage: 20 MG EVERY 4 WEEKS
     Route: 030
     Dates: start: 20041101, end: 20050330
  3. SANDOSTATIN LAR [Suspect]
     Dosage: 30 MG, EVERY 4 WEEKS
     Route: 030
     Dates: start: 20041101
  4. SANDOSTATIN LAR [Suspect]
     Dosage: 20 MG, UNK
     Route: 030
     Dates: end: 20100410

REACTIONS (21)
  - VISION BLURRED [None]
  - BLOOD PRESSURE SYSTOLIC INCREASED [None]
  - EMOTIONAL DISTRESS [None]
  - EYE DISCHARGE [None]
  - DISTURBANCE IN SOCIAL BEHAVIOUR [None]
  - DIARRHOEA [None]
  - JOINT INJURY [None]
  - NEOPLASM MALIGNANT [None]
  - LACRIMATION INCREASED [None]
  - FALL [None]
  - ANKLE FRACTURE [None]
  - EYE DISORDER [None]
  - ABDOMINAL DISCOMFORT [None]
  - VITREOUS FLOATERS [None]
  - HEART RATE INCREASED [None]
  - BLOOD PRESSURE INCREASED [None]
  - ARTHRALGIA [None]
  - PRODUCTIVE COUGH [None]
  - VISUAL ACUITY REDUCED [None]
  - INFLUENZA [None]
  - NASOPHARYNGITIS [None]
